FAERS Safety Report 22310081 (Version 1)
Quarter: 2023Q2

REPORT INFORMATION
  Report Type: Spontaneous
  Country: US (occurrence: None)
  Receive Date: 20230510
  Receipt Date: 20230510
  Transmission Date: 20230721
  Serious: Yes (Hospitalization)
  Sender: FDA-Public Use
  Company Number: None

PATIENT
  Age: 58 Year
  Sex: Female
  Weight: 42.6 kg

DRUGS (2)
  1. DOXORUBICIN [Suspect]
     Active Substance: DOXORUBICIN
     Indication: Chemotherapy
     Dosage: FREQUENCY : EVERY OTHER WEEK;?
     Route: 041
     Dates: start: 20230413
  2. CYCLOPHOSPHAMIDE [Suspect]
     Active Substance: CYCLOPHOSPHAMIDE
     Indication: Chemotherapy
     Dosage: OTHER FREQUENCY : EVERY 2 WEEKS;?
     Route: 041
     Dates: start: 20230413

REACTIONS (7)
  - Febrile neutropenia [None]
  - Oral infection [None]
  - Leukocytosis [None]
  - Mucosal inflammation [None]
  - Pharyngitis [None]
  - Tooth infection [None]
  - Sepsis [None]

NARRATIVE: CASE EVENT DATE: 20230506
